FAERS Safety Report 9626838 (Version 1)
Quarter: 2013Q4

REPORT INFORMATION
  Report Type: Spontaneous
  Country: VE (occurrence: VE)
  Receive Date: 20131016
  Receipt Date: 20131016
  Transmission Date: 20140711
  Serious: Yes (Death, Other)
  Sender: FDA-Public Use
  Company Number: VE-PFIZER INC-2013294971

PATIENT
  Sex: Female

DRUGS (2)
  1. UNASYN [Suspect]
     Indication: URINARY TRACT INFECTION
     Dosage: 3 G, 3X/DAY
     Route: 042
  2. UNASYN [Suspect]
     Dosage: 3 G, 4X/DAY
     Route: 042

REACTIONS (1)
  - Sepsis [Fatal]
